FAERS Safety Report 10029149 (Version 2)
Quarter: 2014Q1

REPORT INFORMATION
  Report Type: Report from Study
  Country: BE (occurrence: BE)
  Receive Date: 20140321
  Receipt Date: 20140321
  Transmission Date: 20141002
  Serious: Yes (Hospitalization, Other)
  Sender: FDA-Public Use
  Company Number: BE-BRISTOL-MYERS SQUIBB COMPANY-20093209

PATIENT
  Age: 62 Year
  Sex: Male
  Weight: 82.1 kg

DRUGS (14)
  1. NIVOLUMAB [Suspect]
     Indication: METASTATIC MALIGNANT MELANOMA
     Route: 042
     Dates: start: 20131125, end: 20140106
  2. IPILIMUMAB [Suspect]
     Indication: METASTATIC MALIGNANT MELANOMA
     Route: 042
     Dates: start: 20131125, end: 20140106
  3. BLINDED: PLACEBO [Suspect]
     Indication: METASTATIC MALIGNANT MELANOMA
     Route: 042
     Dates: start: 20131125, end: 20140106
  4. EXFORGE [Concomitant]
     Dates: start: 20031001
  5. MOXONIDINE [Concomitant]
     Dates: start: 20031001
  6. NEBIVOLOL [Concomitant]
     Dates: start: 20031001
  7. INEGY [Concomitant]
     Dates: start: 20081001
  8. ACETYLSALICYLIC ACID [Concomitant]
     Dates: start: 20091001
  9. BETAMETHASONE DIPROPIONATE [Concomitant]
     Dates: start: 20131205
  10. TRAMADOL [Concomitant]
     Dates: start: 20140120, end: 20140123
  11. ALIZAPRIDE HCL [Concomitant]
     Dates: start: 20140120
  12. DICLOFENAC [Concomitant]
     Dates: start: 20140117, end: 20140120
  13. ACETAMINOPHEN [Concomitant]
     Dates: start: 20140115, end: 20140120
  14. DOMPERIDONE [Concomitant]
     Dates: start: 20140120, end: 20140123

REACTIONS (4)
  - Paraparesis [Not Recovered/Not Resolved]
  - VIIth nerve paralysis [Recovering/Resolving]
  - Hypertension [Recovering/Resolving]
  - Constipation [Recovering/Resolving]
